FAERS Safety Report 25808452 (Version 1)
Quarter: 2025Q3

REPORT INFORMATION
  Report Type: Spontaneous
  Country: US (occurrence: None)
  Receive Date: 20250915
  Receipt Date: 20250915
  Transmission Date: 20251020
  Serious: Yes (Life-Threatening, Disabling)
  Sender: FDA-CTU
  Company Number: None

PATIENT
  Age: 15 Year
  Sex: Male
  Weight: 51.75 kg

DRUGS (2)
  1. BENZEDREX NASAL DECONGESTANT [Suspect]
     Active Substance: PROPYLHEXEDRINE
     Indication: Euphoric mood
     Dates: start: 20250723
  2. ATOMOXETINE [Concomitant]
     Active Substance: ATOMOXETINE

REACTIONS (2)
  - Hallucination [None]
  - Psychotic disorder [None]

NARRATIVE: CASE EVENT DATE: 20250723
